FAERS Safety Report 13655939 (Version 1)
Quarter: 2017Q2

REPORT INFORMATION
  Report Type: Spontaneous
  Country: FR (occurrence: FR)
  Receive Date: 20170615
  Receipt Date: 20170615
  Transmission Date: 20170830
  Serious: Yes (Other)
  Sender: FDA-Public Use
  Company Number: FR-PFIZER INC-2017262653

PATIENT
  Age: 24 Year
  Sex: Male

DRUGS (7)
  1. NEORAL [Suspect]
     Active Substance: CYCLOSPORINE
     Dosage: UNK
     Route: 048
     Dates: start: 20170330
  2. PANTOPRAZOLE [Suspect]
     Active Substance: PANTOPRAZOLE
     Dosage: 20 MG, UNK
     Route: 048
     Dates: start: 20170330
  3. FLUCONAZOLE. [Suspect]
     Active Substance: FLUCONAZOLE
     Dosage: 200 MG, BID
     Route: 048
     Dates: start: 20170330
  4. DITROPAN [Suspect]
     Active Substance: OXYBUTYNIN CHLORIDE
     Dosage: 5 MG, TID
     Route: 048
  5. AMOXICILLIN. [Suspect]
     Active Substance: AMOXICILLIN
     Dosage: 500 MG, TID
     Route: 048
     Dates: start: 20170330
  6. VALACICLOVIR /01269702/ [Suspect]
     Active Substance: VALACYCLOVIR HYDROCHLORIDE
     Dosage: 500 MG, BID
     Route: 048
     Dates: start: 20170330
  7. CHOLURSO [Suspect]
     Active Substance: URSODIOL
     Dosage: 1.5 MG, UNK
     Route: 048
     Dates: start: 20170330

REACTIONS (3)
  - Weight decreased [Recovering/Resolving]
  - Insomnia [Not Recovered/Not Resolved]
  - Urinary tract infection [Recovering/Resolving]

NARRATIVE: CASE EVENT DATE: 2017
